FAERS Safety Report 22703962 (Version 4)
Quarter: 2025Q4

REPORT INFORMATION
  Report Type: Spontaneous
  Country: EU (occurrence: EU)
  Receive Date: 20230714
  Receipt Date: 20251007
  Transmission Date: 20260118
  Serious: Yes (Hospitalization, Other)
  Sender: MSN LABORATORIES PRIVATE LIMITED
  Company Number: EU-MSNLABS-2023MSNLIT01047

PATIENT

DRUGS (13)
  1. PREGABALIN [Suspect]
     Active Substance: PREGABALIN
     Indication: Dependence
     Dosage: DOSE OF 600 MG WAS REDUCED BY 150 MG EVERY THREE DAYS
     Route: 048
  2. PREGABALIN [Suspect]
     Active Substance: PREGABALIN
     Indication: Depression
     Dosage: DOSE OF 600 MG WAS REDUCED BY 150 MG EVERY THREE DAYS
     Route: 065
  3. PREGABALIN [Suspect]
     Active Substance: PREGABALIN
     Indication: Drug dependence
     Route: 065
  4. PREGABALIN [Suspect]
     Active Substance: PREGABALIN
     Indication: Back pain
     Route: 065
  5. PREGABALIN [Suspect]
     Active Substance: PREGABALIN
     Indication: Anxiety
     Dosage: 150 MILLIGRAM, TID
     Route: 065
  6. PREGABALIN [Suspect]
     Active Substance: PREGABALIN
     Indication: Drug abuse
     Route: 065
  7. TRAMADOL [Suspect]
     Active Substance: TRAMADOL
     Indication: Dependence
     Dosage: 2000 MILLIGRAM
     Route: 048
  8. TRAMADOL [Suspect]
     Active Substance: TRAMADOL
     Indication: Depression
     Dosage: TRAMADOL WAS SIMULTANEOUSLY TITRATED DURING DETOXIFICATION
     Route: 065
  9. TRAMADOL [Suspect]
     Active Substance: TRAMADOL
     Indication: Drug dependence
     Route: 065
  10. TRAMADOL [Suspect]
     Active Substance: TRAMADOL
     Indication: Drug abuse
  11. TRAMADOL [Suspect]
     Active Substance: TRAMADOL
     Indication: Detoxification
  12. ANAFRANIL [Suspect]
     Active Substance: CLOMIPRAMINE HYDROCHLORIDE
     Indication: Antidepressant therapy
     Dosage: 75 MILLIGRAM, HS (AT NIGHT)
     Route: 065
  13. PAROXETINE [Suspect]
     Active Substance: PAROXETINE
     Indication: Antidepressant therapy
     Dosage: 40 MILLIGRAM, QD (IN MORNING)
     Route: 065

REACTIONS (9)
  - Toxicity to various agents [Recovered/Resolved]
  - Epilepsy [Recovering/Resolving]
  - Drug withdrawal convulsions [Recovered/Resolved]
  - Drug abuse [Recovered/Resolved]
  - Drug dependence [Recovered/Resolved]
  - Drug withdrawal syndrome [Recovered/Resolved]
  - Mood swings [Unknown]
  - Off label use [Unknown]
  - Intentional product misuse [Unknown]
